FAERS Safety Report 4349290-4 (Version None)
Quarter: 2004Q2

REPORT INFORMATION
  Report Type: 
  Country: None (occurrence: None)
  Receive Date: 20040426
  Receipt Date: 20040412
  Transmission Date: 20050107
  Serious: Yes (Other)
  Sender: FDA-Public Use
  Company Number: US-JNJFOC-20040305591

PATIENT
  Age: 65 Year
  Sex: Female
  Weight: 93.441 kg

DRUGS (8)
  1. REMICADE [Suspect]
     Indication: RHEUMATOID ARTHRITIS
     Dosage: 300 MG, 1 IN 8 WEEK, INTRAVENOUS; 600 MG, INTRAVENOUS; 600 MG, INTRAVENOUS
     Route: 042
     Dates: start: 20030924, end: 20030924
  2. REMICADE [Suspect]
     Indication: RHEUMATOID ARTHRITIS
     Dosage: 300 MG, 1 IN 8 WEEK, INTRAVENOUS; 600 MG, INTRAVENOUS; 600 MG, INTRAVENOUS
     Route: 042
     Dates: start: 20001130
  3. REMICADE [Suspect]
     Indication: RHEUMATOID ARTHRITIS
     Dosage: 300 MG, 1 IN 8 WEEK, INTRAVENOUS; 600 MG, INTRAVENOUS; 600 MG, INTRAVENOUS
     Route: 042
     Dates: start: 20020827
  4. OMEPRAZOLE [Concomitant]
  5. DIOVAN [Concomitant]
  6. INSULIN [Concomitant]
  7. PREDNISONE [Concomitant]
  8. ASPIRIN [Concomitant]

REACTIONS (3)
  - CHRONIC OBSTRUCTIVE AIRWAYS DISEASE EXACERBATED [None]
  - NON-SMALL CELL LUNG CANCER STAGE IIIB [None]
  - THROMBOCYTOPENIA [None]
